FAERS Safety Report 8914447 (Version 2)
Quarter: 2012Q4

REPORT INFORMATION
  Report Type: 
  Country: AU (occurrence: AU)
  Receive Date: 20121119
  Receipt Date: 20121129
  Transmission Date: 20130627
  Serious: Yes (Other)
  Sender: FDA-Public Use
  Company Number: AU-PFIZER INC-2012284243

PATIENT
  Age: 58 Year
  Sex: Female

DRUGS (2)
  1. CELEBREX [Suspect]
     Indication: PAIN IN HIP
     Dosage: 200 mg, 1x/day
     Route: 048
     Dates: start: 20121114, end: 20121114
  2. COVERSYL [Concomitant]
     Indication: BLOOD PRESSURE
     Dosage: 5 mg, in the morning
     Route: 048

REACTIONS (1)
  - Hemianopia [Recovered/Resolved]
